FAERS Safety Report 6253200-2 (Version None)
Quarter: 2009Q3

REPORT INFORMATION
  Report Type: 
  Country: None (occurrence: None)
  Receive Date: 20090701
  Receipt Date: 20090625
  Transmission Date: 20100115
  Serious: Yes (Other)
  Sender: FDA-Public Use
  Company Number: PL-MERCK-0906POL00013

PATIENT
  Age: 4 Year
  Sex: Male

DRUGS (2)
  1. SINGULAIR [Suspect]
     Route: 065
     Dates: start: 20080101, end: 20080101
  2. VALPROIC ACID [Concomitant]
     Indication: EPILEPSY
     Route: 065

REACTIONS (1)
  - EPILEPSY [None]
